FAERS Safety Report 10265494 (Version 1)
Quarter: 2014Q2

REPORT INFORMATION
  Report Type: Spontaneous
  Country: US (occurrence: None)
  Receive Date: 20140625
  Receipt Date: 20140625
  Transmission Date: 20141212
  Serious: Yes (Hospitalization)
  Sender: FDA-Public Use
  Company Number: None

PATIENT
  Age: 67 Year
  Sex: Female

DRUGS (14)
  1. PROLIA [Suspect]
     Indication: OSTEOPOROSIS POSTMENOPAUSAL
     Dosage: 60MG, EVERY 6 MONTHS, SUBCUTANEOUS
     Route: 058
     Dates: start: 20140210, end: 20140210
  2. ACETAMINOPHEN [Concomitant]
  3. CALCITRIOL [Concomitant]
  4. CALCIUM CARBONATE [Concomitant]
  5. CHOLECALCIFEROL [Concomitant]
  6. FERROUS SULFATE [Concomitant]
  7. MAGNESIUM HYDROXIDE [Concomitant]
  8. SERTRALINE [Concomitant]
  9. SIMVASTATIN [Concomitant]
  10. TRAMADOL [Concomitant]
  11. TRAZODONE [Concomitant]
  12. ZOLOFT [Concomitant]
  13. ZANTAC [Concomitant]
  14. ROLLER WALKER [Concomitant]

REACTIONS (4)
  - Convulsion [None]
  - Muscle twitching [None]
  - Electrocardiogram QT prolonged [None]
  - Hypocalcaemia [None]
